FAERS Safety Report 5876970-1 (Version None)
Quarter: 2008Q3

REPORT INFORMATION
  Report Type: 
  Country: None (occurrence: None)
  Receive Date: 20080910
  Receipt Date: 20080901
  Transmission Date: 20090109
  Serious: Yes (Other)
  Sender: FDA-Public Use
  Company Number: PHHY2008BR20136

PATIENT
  Sex: Female
  Weight: 85 kg

DRUGS (2)
  1. ZELMAC [Suspect]
     Indication: CONSTIPATION
     Dosage: 6 MG, UNK
  2. ZELMAC [Suspect]
     Dosage: 2 TAB/DAY
     Route: 048
     Dates: start: 20080601, end: 20080710

REACTIONS (6)
  - ABDOMINAL PAIN [None]
  - CHOLECYSTECTOMY [None]
  - CONSTIPATION [None]
  - DIARRHOEA [None]
  - MYCOBACTERIAL INFECTION [None]
  - WEIGHT INCREASED [None]
